FAERS Safety Report 18216508 (Version 15)
Quarter: 2021Q3

REPORT INFORMATION
  Report Type: Spontaneous
  Country: US (occurrence: US)
  Receive Date: 20200901
  Receipt Date: 20210915
  Transmission Date: 20211014
  Serious: Yes (Hospitalization, Other)
  Sender: FDA-Public Use
  Company Number: US-GLAXOSMITHKLINE-US2020AMR173642

PATIENT
  Age: 38 Year
  Sex: Female

DRUGS (10)
  1. FLOLAN DILUENT PH 12 [Suspect]
     Active Substance: GLYCINE\MANNITOL\SODIUM CHLORIDE
     Indication: PULMONARY ARTERIAL HYPERTENSION
     Dosage: UNK
     Route: 065
     Dates: start: 20160714
  2. FLOLAN [Suspect]
     Active Substance: EPOPROSTENOL SODIUM
     Indication: PULMONARY ARTERIAL HYPERTENSION
     Dosage: 63 NG/KG/MIN, CO
     Route: 065
     Dates: start: 20180216
  3. FLOLAN [Suspect]
     Active Substance: EPOPROSTENOL SODIUM
     Indication: PULMONARY ARTERIAL HYPERTENSION
     Dosage: 63 DF,CO NG/KG/MIN
     Route: 065
     Dates: start: 20180216
  4. FLOLAN DILUENT PH 12 [Suspect]
     Active Substance: GLYCINE\MANNITOL\SODIUM CHLORIDE
     Dosage: UNK
     Dates: start: 20160714
  5. LETAIRIS [Concomitant]
     Active Substance: AMBRISENTAN
     Indication: PRODUCT USED FOR UNKNOWN INDICATION
     Dosage: UNK
  6. FLOLAN DILUENT PH 12 [Suspect]
     Active Substance: GLYCINE\MANNITOL\SODIUM CHLORIDE
     Dosage: UNK
     Route: 065
     Dates: start: 20160714
  7. FLOLAN DILUENT PH 12 [Suspect]
     Active Substance: GLYCINE\MANNITOL\SODIUM CHLORIDE
     Dosage: UNK
     Route: 065
     Dates: start: 20160714
  8. WARFARIN [Concomitant]
     Active Substance: WARFARIN
     Indication: PRODUCT USED FOR UNKNOWN INDICATION
     Dosage: UNK
     Route: 065
  9. FLOLAN [Suspect]
     Active Substance: EPOPROSTENOL SODIUM
     Indication: PULMONARY ARTERIAL HYPERTENSION
     Dosage: 63 NG/KG/MIN, CO
     Route: 065
     Dates: start: 20180216
  10. FLOLAN [Suspect]
     Active Substance: EPOPROSTENOL SODIUM
     Indication: PULMONARY ARTERIAL HYPERTENSION
     Dosage: 63 NG/KG/MIN, CO
     Route: 065
     Dates: start: 20180216

REACTIONS (31)
  - Uterine leiomyoma [Unknown]
  - Depressed mood [Unknown]
  - Vomiting [Unknown]
  - Epistaxis [Unknown]
  - Anxiety [Unknown]
  - Road traffic accident [Unknown]
  - Uterine neoplasm [Unknown]
  - Vaginal haemorrhage [Unknown]
  - Decreased appetite [Unknown]
  - Pulmonary pain [Unknown]
  - Anaemia [Unknown]
  - Abdominal pain [Unknown]
  - Joint swelling [Unknown]
  - Presyncope [Unknown]
  - Pallor [Unknown]
  - Peripheral swelling [Unknown]
  - Influenza [Unknown]
  - Back pain [Unknown]
  - Catheter placement [Unknown]
  - Asthenia [Unknown]
  - Heavy menstrual bleeding [Unknown]
  - Headache [Unknown]
  - Memory impairment [Unknown]
  - Myomectomy [Unknown]
  - Hyperhidrosis [Unknown]
  - Haemorrhage [Unknown]
  - Syncope [Unknown]
  - Fatigue [Unknown]
  - Hospitalisation [Unknown]
  - Device occlusion [Unknown]
  - Malaise [Unknown]

NARRATIVE: CASE EVENT DATE: 20201029
